FAERS Safety Report 7992994-2 (Version None)
Quarter: 2011Q4

REPORT INFORMATION
  Report Type: 
  Country: None (occurrence: None)
  Receive Date: 20111219
  Receipt Date: 20110706
  Transmission Date: 20120403
  Serious: No
  Sender: FDA-Public Use
  Company Number: US-ASTRAZENECA-2011SE40387

PATIENT
  Age: 29 Year
  Sex: Male

DRUGS (1)
  1. CRESTOR [Suspect]
     Route: 048

REACTIONS (4)
  - MYALGIA [None]
  - SOMNOLENCE [None]
  - HEAD DISCOMFORT [None]
  - ASTHENIA [None]
